FAERS Safety Report 9099577 (Version 1)
Quarter: 2013Q1

REPORT INFORMATION
  Report Type: Spontaneous
  Country: US (occurrence: US)
  Receive Date: 20130214
  Receipt Date: 20130214
  Transmission Date: 20140127
  Serious: Yes (Other)
  Sender: FDA-Public Use
  Company Number: PHEH2013US003499

PATIENT
  Sex: Male

DRUGS (3)
  1. DIOVAN [Suspect]
  2. VALSARTAN [Suspect]
  3. PLAVIX [Concomitant]

REACTIONS (3)
  - Myocardial infarction [Unknown]
  - Chest discomfort [Unknown]
  - Obstruction [Unknown]
